FAERS Safety Report 6356378-5 (Version None)
Quarter: 2009Q3

REPORT INFORMATION
  Report Type: 
  Country: None (occurrence: None)
  Receive Date: 20090911
  Receipt Date: 20090911
  Transmission Date: 20100115
  Serious: Yes (Other)
  Sender: FDA-Public Use
  Company Number: None

PATIENT
  Age: 80 Year
  Sex: Female
  Weight: 47.6 kg

DRUGS (2)
  1. VFEND [Suspect]
     Indication: FUNGAL INFECTION
     Dosage: 200 MG Q12H PO
     Route: 048
     Dates: start: 20090902, end: 20090903
  2. VFEND [Suspect]
     Indication: RESPIRATORY DISTRESS
     Dosage: 200 MG Q12H PO
     Route: 048
     Dates: start: 20090902, end: 20090903

REACTIONS (1)
  - LIVER FUNCTION TEST ABNORMAL [None]
